FAERS Safety Report 18458572 (Version 1)
Quarter: 2020Q4

REPORT INFORMATION
  Report Type: Spontaneous
  Country: CA (occurrence: CA)
  Receive Date: 20201103
  Receipt Date: 20201103
  Transmission Date: 20210114
  Serious: Yes (Other)
  Sender: FDA-Public Use
  Company Number: CA-PFIZER INC-2020421211

PATIENT
  Age: 26 Year
  Sex: Female

DRUGS (2)
  1. METHOTREXATE SODIUM. [Suspect]
     Active Substance: METHOTREXATE SODIUM
     Indication: ARTHRITIS
     Dosage: UNK
     Dates: start: 2019
  2. IMURAN [Suspect]
     Active Substance: AZATHIOPRINE
     Indication: ARTHRITIS
     Dosage: UNK

REACTIONS (4)
  - Systemic lupus erythematosus [Recovering/Resolving]
  - Condition aggravated [Unknown]
  - Condition aggravated [Recovering/Resolving]
  - Rheumatoid arthritis [Unknown]

NARRATIVE: CASE EVENT DATE: 201910
